FAERS Safety Report 13507041 (Version 2)
Quarter: 2017Q2

REPORT INFORMATION
  Report Type: Report from Study
  Country: CZ (occurrence: CZ)
  Receive Date: 20170503
  Receipt Date: 20170602
  Transmission Date: 20170830
  Serious: Yes (Hospitalization)
  Sender: FDA-Public Use
  Company Number: CZ-ROCHE-1908150

PATIENT
  Age: 69 Year
  Sex: Male
  Weight: 76 kg

DRUGS (104)
  1. SALBUTAMOLI SULFAS [Concomitant]
     Indication: ASTHMA
     Route: 065
     Dates: start: 2010
  2. SALBUTAMOLI SULFAS [Concomitant]
     Indication: COUGH
     Route: 065
     Dates: start: 201612
  3. KALII CHLORIDUM [Concomitant]
     Route: 065
     Dates: start: 20170406, end: 20170420
  4. FILGRASTIM [Concomitant]
     Active Substance: FILGRASTIM
     Route: 065
     Dates: start: 20161219, end: 20161224
  5. METOCLOPRAMIDI HYDROCHLORIDUM [Concomitant]
     Indication: NAUSEA
     Route: 065
     Dates: start: 20161228, end: 20170104
  6. METOCLOPRAMIDI HYDROCHLORIDUM [Concomitant]
     Route: 065
     Dates: start: 20161130, end: 20161201
  7. OSELTAMIVIRUM [Concomitant]
     Indication: INFECTION PROPHYLAXIS
     Route: 065
     Dates: start: 20161219, end: 20161222
  8. FLUCONAZOLE. [Concomitant]
     Active Substance: FLUCONAZOLE
     Indication: PROPHYLAXIS
     Route: 065
     Dates: start: 20161220, end: 20161224
  9. OMEPRAZOLUM [Concomitant]
     Route: 065
     Dates: start: 20161130, end: 20161204
  10. OMEPRAZOLUM [Concomitant]
     Route: 065
     Dates: start: 20170314
  11. RABEPRAZOLUM NATRICUM [Concomitant]
     Indication: PROPHYLAXIS
     Route: 065
     Dates: start: 20170104, end: 20170313
  12. VANCOMYCINI HYDROCHLORIDUM [Concomitant]
     Indication: FEBRILE NEUTROPENIA
     Route: 065
     Dates: start: 20161219, end: 20161225
  13. PARACETAMOLUM [Concomitant]
     Active Substance: ACETAMINOPHEN
     Indication: FEBRILE NEUTROPENIA
     Route: 065
     Dates: start: 20161212, end: 20161212
  14. FORMOTEROL FUMARATE DIHYDRATE [Concomitant]
     Active Substance: FORMOTEROL FUMARATE DIHYDRATE
     Route: 065
     Dates: start: 20161205, end: 20161218
  15. ACICLOVIRUM [Concomitant]
     Indication: INFECTION PROPHYLAXIS
     Route: 065
     Dates: start: 20161202
  16. BISULEPIN HYDROCHLORIDE [Concomitant]
     Active Substance: BISULEPIN HYDROCHLORIDE
     Indication: PREMEDICATION
     Route: 065
     Dates: start: 20170227, end: 20170227
  17. BISULEPIN HYDROCHLORIDE [Concomitant]
     Active Substance: BISULEPIN HYDROCHLORIDE
     Route: 065
     Dates: start: 20161212, end: 20161212
  18. VALACICLOVIR [Concomitant]
     Active Substance: VALACYCLOVIR HYDROCHLORIDE
     Indication: CHRONIC OBSTRUCTIVE PULMONARY DISEASE
     Route: 065
     Dates: start: 20170309, end: 20170412
  19. VANCOMYCINUM [Concomitant]
     Indication: INFECTION
     Route: 065
     Dates: start: 20161202, end: 20161204
  20. FILGRASTIM [Concomitant]
     Active Substance: FILGRASTIM
     Route: 065
     Dates: start: 20161204, end: 20161204
  21. METOCLOPRAMIDI HYDROCHLORIDUM [Concomitant]
     Route: 065
     Dates: start: 20170314, end: 20170315
  22. GRANISETRONUM [Concomitant]
     Indication: PROPHYLAXIS OF NAUSEA AND VOMITING
     Route: 065
     Dates: start: 20170319, end: 20170319
  23. GRANISETRONUM [Concomitant]
     Route: 065
     Dates: start: 20170403, end: 20170403
  24. FUROSEMIDUM [Concomitant]
     Active Substance: FUROSEMIDE
     Indication: PROPHYLAXIS
     Route: 065
     Dates: start: 20170317, end: 20170317
  25. ADEMETIONINUM [Concomitant]
     Route: 065
     Dates: start: 20170404, end: 20170407
  26. VENETOCLAX [Suspect]
     Active Substance: VENETOCLAX
     Indication: B-CELL LYMPHOMA
     Dosage: DOSE OF LAST GDC-0199 ADMINISTERED, 800 MG?DATE OF MOST RECENT DOSE, 19/DEC/2016
     Route: 048
     Dates: start: 20161010
  27. CYCLOPHOSPHAMIDE. [Suspect]
     Active Substance: CYCLOPHOSPHAMIDE
     Indication: B-CELL LYMPHOMA
     Dosage: DOSE OF LAST CYCLOPHOSPHAMIDE, 1470 MG?DATE OF MOST RECENT DOSE, 27/FEB/2017 AT 15 22 AND 12/DEC/201
     Route: 042
     Dates: start: 20161008
  28. DOXORUBICIN [Suspect]
     Active Substance: DOXORUBICIN
     Indication: B-CELL LYMPHOMA
     Dosage: DOSE OF LAST DOXORUBICIN, 98 MG?DATE OF MOST RECENT DOSE, 27/FEB/2017 AT 16 22 AND 12/DEC/2016 AT 15
     Route: 042
     Dates: start: 20161008
  29. RABEPRAZOLUM NATRICUM [Concomitant]
     Route: 065
     Dates: start: 20161110, end: 20161129
  30. PARACETAMOLUM [Concomitant]
     Active Substance: ACETAMINOPHEN
     Route: 065
     Dates: start: 20161219, end: 20161220
  31. CODEINIPHOSPHAS HEMIHYDRICUS [Concomitant]
     Route: 065
     Dates: start: 20161224, end: 20170103
  32. METOCLOPRAMIDI HYDROCHLORIDUM [Concomitant]
     Route: 065
     Dates: start: 20161201, end: 20161203
  33. TRAMADOLI HYDROCHLORIDUM [Concomitant]
     Indication: MUCOSAL INFLAMMATION
     Route: 065
     Dates: start: 20161221, end: 20161227
  34. IRRADIATED PACKED RED BLOOD CELLS [Concomitant]
     Route: 065
     Dates: start: 20161225, end: 20161225
  35. IRRADIATED PACKED RED BLOOD CELLS [Concomitant]
     Route: 065
     Dates: start: 20170317, end: 20170317
  36. GRANISETRONUM [Concomitant]
     Indication: VOMITING
     Route: 065
     Dates: start: 20161130, end: 20161201
  37. LACTULOSUM [Concomitant]
     Route: 065
     Dates: start: 20170328, end: 20170328
  38. PREDNISONE. [Suspect]
     Active Substance: PREDNISONE
     Indication: B-CELL LYMPHOMA
     Dosage: DATE OF MOST RECENT DOSE, 03/MAR/2017 AND 16/DEC/2016
     Route: 048
     Dates: start: 20161007
  39. BUDESONIDUM [Concomitant]
     Active Substance: BUDESONIDE
     Route: 065
     Dates: end: 20161129
  40. TRIMECAIN [Concomitant]
     Indication: MUCOSAL INFLAMMATION
     Route: 065
     Dates: start: 20161108, end: 20170314
  41. KALII CHLORIDUM [Concomitant]
     Route: 065
     Dates: start: 20161229, end: 20161229
  42. PARACETAMOLUM [Concomitant]
     Active Substance: ACETAMINOPHEN
     Indication: PREMEDICATION
     Route: 065
     Dates: start: 20170227, end: 20170227
  43. PARACETAMOLUM [Concomitant]
     Active Substance: ACETAMINOPHEN
     Route: 065
     Dates: start: 20170403, end: 20170403
  44. BACITRACIN ZINC/NEOMYCIN SULFATE [Concomitant]
     Indication: EXTERNAL EAR CELLULITIS
     Route: 065
     Dates: start: 20170209, end: 20170213
  45. FILGRASTIM [Concomitant]
     Active Substance: FILGRASTIM
     Route: 065
     Dates: start: 20161220, end: 20161224
  46. CAPTOPRILUM [Concomitant]
     Indication: HYPERTENSION
     Route: 065
     Dates: start: 20161230, end: 20161230
  47. IRRADIATED PACKED RED BLOOD CELLS [Concomitant]
     Indication: ANAEMIA
     Route: 065
     Dates: start: 20161221, end: 20161221
  48. CIPROFLOXACINUM [Concomitant]
     Indication: INFECTION PROPHYLAXIS
     Route: 065
     Dates: start: 20161205, end: 20161211
  49. LACTULOSUM [Concomitant]
     Indication: CONSTIPATION
     Route: 065
     Dates: start: 20170317, end: 20170317
  50. RITUXIMAB [Suspect]
     Active Substance: RITUXIMAB
     Indication: B-CELL LYMPHOMA
     Dosage: DOSE OF LAST RITUXIMAB, 735 MG?DATE OF MOST RECENT DOSE, 27/FEB/2017 AT 12 30 AND 12/DEC/2016 AT 12:
     Route: 042
     Dates: start: 20161007
  51. LIPEGFILGRASTIM [Concomitant]
     Active Substance: LIPEGFILGRASTIM
     Indication: PROPHYLAXIS
     Route: 065
     Dates: start: 20170408, end: 20170408
  52. KALII CHLORIDUM [Concomitant]
     Indication: PROPHYLAXIS
     Route: 065
     Dates: start: 20170209, end: 20170314
  53. HYDROCORTISONUM [Concomitant]
     Active Substance: HYDROCORTISONE
     Indication: PREMEDICATION
     Route: 065
     Dates: start: 20170227, end: 20170227
  54. KETOTIFEN FUMARATE. [Concomitant]
     Active Substance: KETOTIFEN FUMARATE
     Indication: ASTHMA
     Route: 065
     Dates: start: 2010
  55. METAMIZOLUM NATRICUM [Concomitant]
     Indication: PROPHYLAXIS
     Route: 065
     Dates: start: 20161201, end: 20161203
  56. BISULEPIN HYDROCHLORIDE [Concomitant]
     Active Substance: BISULEPIN HYDROCHLORIDE
     Route: 065
     Dates: start: 20170403, end: 20170403
  57. ERDOSTEINUM [Concomitant]
     Dosage: PROPHYLAXIS OF EXACERBATION OF CHRONIC OBSTRUCTIVE PULMONARY DISEASE
     Route: 065
     Dates: start: 20170407
  58. FILGRASTIM [Concomitant]
     Active Substance: FILGRASTIM
     Indication: FEBRILE NEUTROPENIA
     Route: 065
     Dates: start: 20161217, end: 20161218
  59. METOCLOPRAMIDI HYDROCHLORIDUM [Concomitant]
     Indication: PROPHYLAXIS
     Dosage: REPORTED AS METOCLOPRAMIDI HYDROCHLORIDUM MONOHYDRICUM
     Route: 065
     Dates: start: 20161221, end: 20161226
  60. NADROPARIN CALCIUM [Concomitant]
     Active Substance: NADROPARIN CALCIUM
     Indication: JOINT SWELLING
     Route: 065
     Dates: start: 20170109, end: 20170118
  61. CAPTOPRILUM [Concomitant]
     Indication: HYPERTENSION
     Route: 065
     Dates: start: 20161227, end: 20161227
  62. CAPTOPRILUM [Concomitant]
     Route: 065
     Dates: start: 20170317, end: 20170317
  63. AMLODIPINUM [Concomitant]
     Indication: HYPERTENSION
     Route: 065
     Dates: start: 20170318, end: 20170407
  64. DESLORATADINUM [Concomitant]
     Indication: PROPHYLAXIS
     Route: 065
     Dates: start: 20170213, end: 20170218
  65. THIETHYLPERAZINE MALEATE [Concomitant]
     Active Substance: THIETHYLPERAZINE MALEATE
     Route: 065
     Dates: start: 20170327, end: 20170327
  66. LACTULOSUM [Concomitant]
     Route: 065
     Dates: start: 20170323, end: 20170323
  67. BUDESONIDUM [Concomitant]
     Active Substance: BUDESONIDE
     Indication: ASTHMA
     Route: 065
     Dates: start: 20161205
  68. AMBROXOLI HYDROCHLORIDUM [Concomitant]
     Indication: INFECTION PROPHYLAXIS
     Route: 065
     Dates: start: 20161221, end: 20170104
  69. PARACETAMOLUM [Concomitant]
     Active Substance: ACETAMINOPHEN
     Indication: OBSTRUCTIVE AIRWAYS DISORDER
     Route: 065
     Dates: start: 201702, end: 201702
  70. FORMOTEROL FUMARATE DIHYDRATE [Concomitant]
     Active Substance: FORMOTEROL FUMARATE DIHYDRATE
     Indication: ASTHMA
     Dosage: REPORTED AS: FORMOTEROLI FUMARAS DIHYDRICUS
     Route: 065
     Dates: start: 20170105
  71. METAMIZOLUM NATRICUM [Concomitant]
     Indication: FEBRILE NEUTROPENIA
     Dosage: REPORTED AS: METAMIZOLUM NATRICUM MONOHYDRICUM
     Route: 065
     Dates: start: 20161219, end: 20161221
  72. METAMIZOLUM NATRICUM [Concomitant]
     Route: 065
     Dates: start: 20161129, end: 20161130
  73. FILGRASTIM [Concomitant]
     Active Substance: FILGRASTIM
     Route: 065
     Dates: start: 20170204, end: 20170213
  74. MEROPENEMUM [Concomitant]
     Indication: FEBRILE NEUTROPENIA
     Route: 065
     Dates: start: 20161219, end: 20170104
  75. MOXIFLOXACINUM [Concomitant]
     Indication: CHRONIC OBSTRUCTIVE PULMONARY DISEASE
     Route: 065
     Dates: start: 20170213, end: 20170320
  76. FLUCONAZOLE. [Concomitant]
     Active Substance: FLUCONAZOLE
     Indication: FEBRILE NEUTROPENIA
     Route: 065
     Dates: start: 20161221, end: 20170103
  77. CAPTOPRILUM [Concomitant]
     Route: 065
     Dates: start: 20170314, end: 20170314
  78. CEFEPIME HYDROCHLORIDE. [Concomitant]
     Active Substance: CEFEPIME HYDROCHLORIDE
     Indication: FEBRILE NEUTROPENIA
     Route: 065
     Dates: start: 20161130, end: 20161205
  79. FUROSEMIDUM [Concomitant]
     Active Substance: FUROSEMIDE
     Route: 065
     Dates: start: 20170404
  80. RABEPRAZOLUM NATRICUM [Concomitant]
     Route: 065
     Dates: start: 20161205, end: 20161219
  81. AMBROXOLI HYDROCHLORIDUM [Concomitant]
     Indication: COUGH
     Route: 065
     Dates: start: 20170110
  82. HYDROCORTISONUM [Concomitant]
     Active Substance: HYDROCORTISONE
     Route: 065
     Dates: start: 20170403, end: 20170403
  83. CODEINIPHOSPHAS HEMIHYDRICUS [Concomitant]
     Indication: COUGH
     Route: 065
     Dates: start: 20170107
  84. ERDOSTEINUM [Concomitant]
     Indication: CHRONIC OBSTRUCTIVE PULMONARY DISEASE
     Route: 065
     Dates: start: 20170219, end: 20170328
  85. NADROPARIN CALCIUM [Concomitant]
     Active Substance: NADROPARIN CALCIUM
     Indication: THROMBOSIS PROPHYLAXIS
     Route: 065
     Dates: start: 20170314, end: 20170315
  86. MOXIFLOXACINUM [Concomitant]
     Indication: PROPHYLAXIS
     Route: 065
     Dates: start: 20170104, end: 20170122
  87. OMEPRAZOLUM [Concomitant]
     Indication: PROPHYLAXIS
     Route: 065
     Dates: start: 20161219, end: 20170104
  88. IRRADIATED PACKED RED BLOOD CELLS [Concomitant]
     Indication: THROMBOCYTOPENIA
     Route: 065
     Dates: start: 20161222, end: 20161222
  89. PERINDOPRIL ARGININE [Concomitant]
     Active Substance: PERINDOPRIL ARGININE
     Indication: HYPERTENSION
     Route: 065
     Dates: start: 20170322, end: 20170407
  90. ACIDUM URSODEOXYCHOLICUM [Concomitant]
     Indication: PROPHYLAXIS
     Route: 065
     Dates: start: 20170404, end: 20170407
  91. VINCRISTINE [Suspect]
     Active Substance: VINCRISTINE
     Indication: B-CELL LYMPHOMA
     Dosage: DOSE OF LAST VINCRISTINE, 2 MG?DATE OF MOST RECENT DOSE, 27/FEB/2017 AT 15 20 AND 12/DEC/2016 AT 14:
     Route: 042
     Dates: start: 20161008
  92. LATANOPROSTUM [Concomitant]
     Indication: GLAUCOMA
  93. TRIMECAIN [Concomitant]
     Indication: STOMATITIS
  94. HYDROCORTISONUM [Concomitant]
     Active Substance: HYDROCORTISONE
     Route: 065
     Dates: start: 20161212, end: 20161212
  95. FORMOTEROL FUMARATE DIHYDRATE [Concomitant]
     Active Substance: FORMOTEROL FUMARATE DIHYDRATE
     Route: 065
     Dates: start: 2010, end: 20161129
  96. HERPESIN [Concomitant]
     Indication: PROPHYLAXIS
     Route: 065
     Dates: start: 20161014
  97. VALACICLOVIR [Concomitant]
     Active Substance: VALACYCLOVIR HYDROCHLORIDE
     Indication: HYPERTENSION
     Route: 065
     Dates: start: 20161231, end: 20170103
  98. FILGRASTIM [Concomitant]
     Active Substance: FILGRASTIM
     Indication: PROPHYLAXIS
     Route: 065
     Dates: start: 20161126, end: 20161202
  99. FILGRASTIM [Concomitant]
     Active Substance: FILGRASTIM
     Route: 065
     Dates: start: 20161227, end: 20161227
  100. FILGRASTIM [Concomitant]
     Active Substance: FILGRASTIM
     Route: 065
     Dates: start: 20170304, end: 20170312
  101. AMLODIPINUM [Concomitant]
     Indication: HYPERTENSION
     Route: 065
     Dates: start: 20161227, end: 20161227
  102. THIETHYLPERAZINE MALEATE [Concomitant]
     Active Substance: THIETHYLPERAZINE MALEATE
     Indication: NAUSEA
     Route: 065
     Dates: start: 20170316, end: 20170316
  103. FUROSEMIDUM [Concomitant]
     Active Substance: FUROSEMIDE
     Route: 065
     Dates: start: 20170324, end: 20170324
  104. BISOPROLOL FUMARATE. [Concomitant]
     Active Substance: BISOPROLOL FUMARATE
     Indication: HYPERTENSION
     Route: 065
     Dates: start: 20170405, end: 20170407

REACTIONS (2)
  - Pneumonia [Recovered/Resolved]
  - Atypical pneumonia [Recovered/Resolved]

NARRATIVE: CASE EVENT DATE: 20161222
